FAERS Safety Report 18795201 (Version 1)
Quarter: 2021Q1

REPORT INFORMATION
  Report Type: Spontaneous
  Country: US (occurrence: US)
  Receive Date: 20210127
  Receipt Date: 20210127
  Transmission Date: 20210419
  Serious: No
  Sender: FDA-Public Use
  Company Number: US-PARATEK PHARMACEUTICALS, INC.-2020PTK00263

PATIENT
  Age: 80 Year
  Sex: Male

DRUGS (2)
  1. NUZYRA [Suspect]
     Active Substance: OMADACYCLINE
     Indication: INFLAMMATION
  2. NUZYRA [Suspect]
     Active Substance: OMADACYCLINE
     Indication: INFECTION
     Dosage: 300 MG, 1X/DAY
     Route: 048
     Dates: start: 201910, end: 202010

REACTIONS (2)
  - Incorrect product administration duration [Recovered/Resolved]
  - Staphylococcal infection [Unknown]

NARRATIVE: CASE EVENT DATE: 201910
